FAERS Safety Report 8995434 (Version 1)
Quarter: 2013Q1

REPORT INFORMATION
  Report Type: Spontaneous
  Country: US (occurrence: US)
  Receive Date: 20130103
  Receipt Date: 20130103
  Transmission Date: 20140127
  Serious: No
  Sender: FDA-Public Use
  Company Number: US-ABBOTT-12P-163-0924887-00

PATIENT
  Sex: Female

DRUGS (1)
  1. SYNTHROID [Suspect]
     Indication: HYPOTHYROIDISM
     Dosage: .50 MCG DAILY

REACTIONS (5)
  - Suspected counterfeit product [Unknown]
  - Asthenia [Unknown]
  - Fatigue [Unknown]
  - Thyroid function test abnormal [Unknown]
  - Alopecia [Unknown]
